FAERS Safety Report 23185854 (Version 1)
Quarter: 2023Q4

REPORT INFORMATION
  Report Type: Spontaneous
  Country: US (occurrence: US)
  Receive Date: 20231115
  Receipt Date: 20231115
  Transmission Date: 20240109
  Serious: No
  Sender: FDA-Public Use
  Company Number: US-OTSUKA-2023_017320

PATIENT
  Age: 10 Year
  Sex: Female
  Weight: 18.14 kg

DRUGS (1)
  1. NUEDEXTA [Suspect]
     Active Substance: DEXTROMETHORPHAN HYDROBROMIDE\QUINIDINE SULFATE
     Indication: Affective disorder
     Dosage: 1 DF (20-10MG), QD
     Route: 065

REACTIONS (6)
  - Speech sound disorder [Not Recovered/Not Resolved]
  - Vomiting [Unknown]
  - Drug effective for unapproved indication [Unknown]
  - Product use issue [Unknown]
  - Therapy interrupted [Unknown]
  - Product dose omission issue [Unknown]

NARRATIVE: CASE EVENT DATE: 20230624
